FAERS Safety Report 9870573 (Version 1)
Quarter: 2014Q1

REPORT INFORMATION
  Report Type: Spontaneous
  Country: ES (occurrence: ES)
  Receive Date: 20140205
  Receipt Date: 20140205
  Transmission Date: 20141002
  Serious: Yes (Death, Other)
  Sender: FDA-Public Use
  Company Number: PHHY2014ES011298

PATIENT
  Age: 60 Year
  Sex: Male

DRUGS (5)
  1. CEFEPIME [Suspect]
     Indication: PSEUDOMONAS INFECTION
     Dosage: 2 G, Q8H
     Route: 042
  2. CEFEPIME [Suspect]
     Indication: RESPIRATORY TRACT INFECTION
  3. TACROLIMUS [Concomitant]
     Indication: IMMUNOSUPPRESSANT DRUG THERAPY
     Dosage: 2 MG, Q12H
  4. TACROLIMUS [Concomitant]
     Dosage: 1.5 MG, QD
  5. CYCLOSPORINE [Concomitant]
     Dosage: 300 MG, QD

REACTIONS (7)
  - Cardiac failure [Fatal]
  - Status epilepticus [Recovering/Resolving]
  - Mental disorder [Recovering/Resolving]
  - Disturbance in attention [Recovering/Resolving]
  - Myoclonus [Recovering/Resolving]
  - Toxicity to various agents [Unknown]
  - Coma [Recovering/Resolving]
